FAERS Safety Report 10920935 (Version 2)
Quarter: 2015Q2

REPORT INFORMATION
  Report Type: Spontaneous
  Country: US (occurrence: US)
  Receive Date: 20150317
  Receipt Date: 20150611
  Transmission Date: 20150821
  Serious: No
  Sender: FDA-Public Use
  Company Number: US-TEVA-542012USA

PATIENT
  Age: 72 Year
  Sex: Male

DRUGS (8)
  1. GABAPENTIN. [Suspect]
     Active Substance: GABAPENTIN
     Dosage: 100 MILLIGRAM DAILY;
     Route: 048
     Dates: start: 20150218
  2. DULOXETINE [Suspect]
     Active Substance: DULOXETINE
     Indication: DIABETIC NEUROPATHY
     Dosage: 100 MILLIGRAM DAILY; TOOK ONLY 1 DOSE
     Route: 048
     Dates: start: 20150213, end: 20150213
  3. LISINOPRIL. [Concomitant]
     Active Substance: LISINOPRIL
  4. AMLODIPINE [Concomitant]
     Active Substance: AMLODIPINE BESYLATE
  5. VENTOLIN HFA [Concomitant]
     Active Substance: ALBUTEROL SULFATE
  6. GABAPENTIN. [Suspect]
     Active Substance: GABAPENTIN
     Indication: DIABETIC NEUROPATHY
     Dosage: 100 MILLIGRAM DAILY;
     Route: 048
     Dates: start: 20150216, end: 20150216
  7. NOVOLIN [Concomitant]
     Active Substance: INSULIN HUMAN
  8. FINASTERIDE. [Concomitant]
     Active Substance: FINASTERIDE

REACTIONS (10)
  - Nausea [Unknown]
  - Drug withdrawal syndrome [Unknown]
  - Hypoaesthesia [Recovered/Resolved]
  - Anxiety [Recovered/Resolved]
  - Oropharyngeal pain [Recovered/Resolved]
  - Pain in extremity [Recovered/Resolved]
  - Tremor [Recovered/Resolved]
  - Dizziness [Recovered/Resolved]
  - Hyperhidrosis [Recovered/Resolved]
  - Vision blurred [Recovered/Resolved]

NARRATIVE: CASE EVENT DATE: 201502
